FAERS Safety Report 10699135 (Version 6)
Quarter: 2016Q1

REPORT INFORMATION
  Report Type: Spontaneous
  Country: US (occurrence: US)
  Receive Date: 20150108
  Receipt Date: 20160115
  Transmission Date: 20160525
  Serious: No
  Sender: FDA-Public Use
  Company Number: US-PFIZER INC-2015006481

PATIENT
  Age: 66 Year
  Sex: Female

DRUGS (22)
  1. ALLOPURINOL. [Concomitant]
     Active Substance: ALLOPURINOL
     Dosage: UNK, 2X/DAY, X 90 DAYS
     Route: 048
     Dates: start: 20141031
  2. HYOSCYAMINE SULFATE. [Concomitant]
     Active Substance: HYOSCYAMINE SULFATE
     Dosage: 0.125 MG, 3X/DAY (1 TAB BY MOUTH)
     Route: 048
  3. LASIX [Concomitant]
     Active Substance: FUROSEMIDE
     Dosage: 80 MG, 2X/DAY
     Route: 048
     Dates: start: 20140430
  4. XAPENEX HFA [Concomitant]
     Dosage: 45 ?G, UNK, HFA AEROSOLE INHALER 1 PUFF EVERY SIX HOURS
  5. ZOFRAN [Concomitant]
     Active Substance: ONDANSETRON HYDROCHLORIDE
     Indication: NAUSEA
     Dosage: 4 MG, AS NEEDED (1 TAB BY MOUTH 3 TIMES A DAY)
     Route: 048
  6. ZOFRAN [Concomitant]
     Active Substance: ONDANSETRON HYDROCHLORIDE
     Indication: VOMITING
  7. BENGAY GREASELESS [Concomitant]
     Dosage: UNK, 15-10% , 1X/DAY, AS NEEDED
  8. RANITIDINE HYDROCHLORIDE. [Concomitant]
     Active Substance: RANITIDINE HYDROCHLORIDE
     Dosage: 300 MG, AT BED TIME
     Route: 048
     Dates: start: 20140903
  9. TYLENOL [Concomitant]
     Active Substance: ACETAMINOPHEN
     Dosage: UNK
  10. WARFARIN [Concomitant]
     Active Substance: WARFARIN
     Dosage: 4 MG, 1X/DAYX 30 DAYS
     Route: 048
  11. ALPRAZOLAM. [Concomitant]
     Active Substance: ALPRAZOLAM
     Dosage: 1 MG, AS NEEDED (1 TAB BY MOUTH THREE TIMES A DAY)
     Route: 048
     Dates: start: 20140414
  12. POTASSIUM CHLORIDE. [Concomitant]
     Active Substance: POTASSIUM CHLORIDE
     Dosage: 20 MEQ, 3X/DAY
     Route: 048
     Dates: start: 20141031
  13. SPIRONOLACTONE. [Concomitant]
     Active Substance: SPIRONOLACTONE
     Dosage: 25 MG, 1X/DAY
     Route: 048
  14. PROCRIT [Concomitant]
     Active Substance: ERYTHROPOIETIN
     Dosage: 40,000 UNIT/ML SOLUTION 1 ONCE A WEEK, AS NEEDED
  15. PROZAC [Concomitant]
     Active Substance: FLUOXETINE HYDROCHLORIDE
     Dosage: 20 MG, 1X/DAY
     Route: 048
     Dates: start: 20140908
  16. AMITRIPTYLINE [Concomitant]
     Active Substance: AMITRIPTYLINE
     Dosage: 60 MG, AS NEEDED, (1 TAB BY MOUTH EVERY NIGHT)
     Route: 048
  17. OMEPRAZOLE. [Concomitant]
     Active Substance: OMEPRAZOLE
     Dosage: 40 MG, 1X/DAY (2 CAPSULE BY MOUTH 1 A DAY AS DIRECTED)
     Route: 048
     Dates: start: 20141230
  18. TRADJENTA [Concomitant]
     Active Substance: LINAGLIPTIN
     Dosage: 5 MG, 1X/DAY
     Route: 048
  19. LYRICA [Suspect]
     Active Substance: PREGABALIN
     Indication: DIABETIC NEUROPATHY
     Dosage: 200 MG, 2X/DAY
     Route: 048
     Dates: start: 20131115, end: 20150410
  20. LOPERAMID [Concomitant]
     Active Substance: LOPERAMIDE
     Dosage: 2 MG, AS NEEDED
  21. PROPAFENONE. [Concomitant]
     Active Substance: PROPAFENONE
     Dosage: 225 MG, 3X/DAY (ONE TAB BY MOUTH EVERY 8 HOURS)
     Route: 048
  22. SILVADENE [Concomitant]
     Active Substance: SILVER SULFADIAZINE
     Dosage: 1 %, AS NEEDED (4 TIMES A DAYX 7 DAYS)
     Dates: start: 20131223

REACTIONS (7)
  - Pain [Unknown]
  - Upper respiratory tract infection [Unknown]
  - Nausea [Unknown]
  - Visual impairment [Unknown]
  - Vomiting [Unknown]
  - Headache [Unknown]
  - Peripheral swelling [Unknown]
